FAERS Safety Report 24684116 (Version 2)
Quarter: 2024Q4

REPORT INFORMATION
  Report Type: Report from Study
  Country: IL (occurrence: IL)
  Receive Date: 20241202
  Receipt Date: 20241208
  Transmission Date: 20250115
  Serious: Yes (Hospitalization)
  Sender: ABBVIE
  Company Number: IL-ABBVIE-6026328

PATIENT
  Age: 73 Year
  Sex: Male

DRUGS (2)
  1. FOSCARBIDOPA\FOSLEVODOPA [Suspect]
     Active Substance: FOSCARBIDOPA\FOSLEVODOPA
     Indication: Parkinson^s disease
     Route: 058
     Dates: start: 20241027
  2. FOSCARBIDOPA\FOSLEVODOPA [Suspect]
     Active Substance: FOSCARBIDOPA\FOSLEVODOPA
     Dosage: LOADING DOSE 0.7ML , BIR-0.2ML/H, HIR-0.22ML/H, LIR-0.15 ML/H, EXTRA DOSAGE-0.10ML, REMAINS AT 24...
     Route: 058

REACTIONS (2)
  - Blood creatinine abnormal [Recovering/Resolving]
  - Nephrolithiasis [Unknown]

NARRATIVE: CASE EVENT DATE: 20241101
